FAERS Safety Report 5205556-7 (Version None)
Quarter: 2007Q1

REPORT INFORMATION
  Report Type: 
  Country: None (occurrence: None)
  Receive Date: 20070109
  Receipt Date: 20070103
  Transmission Date: 20070707
  Serious: Yes (Death)
  Sender: FDA-Public Use
  Company Number: AE-107-002

PATIENT
  Sex: Male

DRUGS (11)
  1. LIDODERM [Suspect]
     Indication: PAIN
  2. TALWIN NX [Concomitant]
  3. AMBIEN [Concomitant]
  4. LORCET-HD [Concomitant]
  5. LORTAB [Concomitant]
  6. NORCO [Concomitant]
  7. VICODIN [Concomitant]
  8. TEMAZEPAM [Concomitant]
  9. DALMANE [Concomitant]
  10. RESTRIL [Concomitant]
  11. LIDOPAIN [Concomitant]

REACTIONS (10)
  - ABNORMAL DREAMS [None]
  - AMNESIA [None]
  - ANXIETY [None]
  - CONFUSIONAL STATE [None]
  - DEPRESSION [None]
  - HALLUCINATION [None]
  - MOOD ALTERED [None]
  - NERVOUSNESS [None]
  - SUICIDAL IDEATION [None]
  - VISUAL DISTURBANCE [None]
